FAERS Safety Report 9552559 (Version 1)
Quarter: 2013Q3

REPORT INFORMATION
  Report Type: Spontaneous
  Country: US (occurrence: None)
  Receive Date: 20130724
  Receipt Date: 20130724
  Transmission Date: 20140515
  Serious: Yes (Other)
  Sender: FDA-Public Use
  Company Number: PHEH2012US015012

PATIENT
  Age: 74 Year
  Sex: Female

DRUGS (2)
  1. GLEEVEC (IMATINIB) UNKNOWN [Suspect]
     Indication: NEOPLASM MALIGNANT
     Route: 048
     Dates: start: 20100104
  2. GLEEVEC (IMATINIB) UNKNOWN [Suspect]
     Indication: SOFT TISSUE CANCER
     Route: 048
     Dates: start: 20100104

REACTIONS (3)
  - Arthritis [None]
  - Fall [None]
  - Joint injury [None]
